FAERS Safety Report 5528081-2 (Version None)
Quarter: 2007Q4

REPORT INFORMATION
  Report Type: 
  Country: None (occurrence: None)
  Receive Date: 20071126
  Receipt Date: 20071126
  Transmission Date: 20080405
  Serious: Yes (Other)
  Sender: FDA-Public Use
  Company Number: None

PATIENT
  Age: 57 Year
  Sex: Female
  Weight: 70.3075 kg

DRUGS (1)
  1. LEVAQUIN [Suspect]
     Indication: OTITIS MEDIA ACUTE
     Dosage: 500 MG  QD  PO
     Route: 048
     Dates: start: 20071121, end: 20071122

REACTIONS (3)
  - PARAESTHESIA [None]
  - TENDON DISORDER [None]
  - TENDON PAIN [None]
